FAERS Safety Report 4433067-5 (Version None)
Quarter: 2004Q3

REPORT INFORMATION
  Report Type: 
  Country: None (occurrence: None)
  Receive Date: 20040823
  Receipt Date: 20040817
  Transmission Date: 20050211
  Serious: No
  Sender: FDA-Public Use
  Company Number: 2004UW17451

PATIENT
  Age: 61 Year
  Sex: Female
  Weight: 62.5964 kg

DRUGS (9)
  1. TOPROL-XL [Suspect]
     Indication: HYPERTENSION
     Dosage: 100 MG BID PO
     Route: 048
     Dates: start: 20040616
  2. TOPROL-XL [Suspect]
     Indication: HYPERTENSION
     Dosage: 50 MG BID PO
     Route: 048
     Dates: start: 20020401, end: 20040601
  3. REMICADE [Suspect]
     Indication: CROHN'S DISEASE
     Dosage: 600 MG DAILY IV
     Route: 042
     Dates: start: 20020201
  4. REMICADE [Suspect]
     Indication: RHEUMATOID ARTHRITIS
     Dosage: 600 MG DAILY IV
     Route: 042
     Dates: start: 20020201
  5. IMURAN [Concomitant]
  6. LESNESTINA [Concomitant]
  7. VITAMIN B-12 [Concomitant]
  8. CELESTAN [Concomitant]
  9. LODINE [Concomitant]

REACTIONS (5)
  - CHILLS [None]
  - CONTUSION [None]
  - EPISTAXIS [None]
  - FACE INJURY [None]
  - LOSS OF CONSCIOUSNESS [None]
